FAERS Safety Report 5016226-2 (Version None)
Quarter: 2006Q2

REPORT INFORMATION
  Report Type: 
  Country: None (occurrence: None)
  Receive Date: 20060414
  Receipt Date: 20060124
  Transmission Date: 20061013
  Serious: No
  Sender: FDA-Public Use
  Company Number: 2006SP000418

PATIENT
  Age: 69 Year
  Sex: Female
  Weight: 63.05 kg

DRUGS (6)
  1. LUNESTA [Suspect]
     Indication: INSOMNIA
     Dosage: 2MG;HS; ORAL
     Route: 048
     Dates: start: 20060118, end: 20060123
  2. PREDNISONE [Concomitant]
  3. SYNTHROID [Concomitant]
  4. COLAZAL [Concomitant]
  5. ASPIRIN [Concomitant]
  6. MULTIVITAMIN [Concomitant]

REACTIONS (2)
  - DYSGEUSIA [None]
  - PARADOXICAL DRUG REACTION [None]
